FAERS Safety Report 7653059-2 (Version None)
Quarter: 2011Q3

REPORT INFORMATION
  Report Type: 
  Country: None (occurrence: None)
  Receive Date: 20110803
  Receipt Date: 20110728
  Transmission Date: 20111222
  Serious: Yes (Hospitalization)
  Sender: FDA-Public Use
  Company Number: PHHY2011GB68650

PATIENT
  Age: 47 Year
  Sex: Female

DRUGS (1)
  1. PIPERACILLIN AND TAZOBACTAM [Suspect]
     Indication: WOUND INFECTION
     Dosage: 4.5 G, TID
     Route: 042
     Dates: start: 20110622, end: 20110707

REACTIONS (3)
  - NEPHRITIS [None]
  - RASH MACULO-PAPULAR [None]
  - INTERSTITIAL LUNG DISEASE [None]
